FAERS Safety Report 4667186-5 (Version None)
Quarter: 2005Q2

REPORT INFORMATION
  Report Type: 
  Country: None (occurrence: None)
  Receive Date: 20050520
  Receipt Date: 20040728
  Transmission Date: 20051028
  Serious: Yes (Other)
  Sender: FDA-Public Use
  Company Number: PHEH2004US08249

PATIENT
  Age: 70 Year
  Sex: Male
  Weight: 73 kg

DRUGS (7)
  1. ZOMETA [Suspect]
     Indication: MULTIPLE MYELOMA
     Dosage: 4 MG, QMO
     Route: 042
     Dates: start: 20030501, end: 20040507
  2. SENOKOT [Concomitant]
     Dosage: 2 UNK, BID
  3. THALIDOMIDE [Suspect]
     Indication: MULTIPLE MYELOMA
     Dosage: 150 MG, QD
     Dates: start: 20030501
  4. SIMVASTATIN [Concomitant]
     Dosage: 20 MG, UNK
  5. AVELOX [Concomitant]
     Dosage: 400 UNK, QD
  6. WARFARIN SODIUM [Concomitant]
     Dosage: 2 MG, UNK
     Dates: start: 20030401
  7. DEXAMETHASONE [Concomitant]
     Dosage: 40 MG, UNK
     Dates: start: 20030401, end: 20030701

REACTIONS (6)
  - BONE DISORDER [None]
  - DENTAL CARIES [None]
  - ORAL INFECTION [None]
  - OSTEONECROSIS [None]
  - PERIODONTITIS [None]
  - SWELLING FACE [None]
